FAERS Safety Report 15950033 (Version 1)
Quarter: 2019Q1

REPORT INFORMATION
  Report Type: Spontaneous
  Country: US (occurrence: US)
  Receive Date: 20190212
  Receipt Date: 20190212
  Transmission Date: 20190417
  Serious: Yes (Death, Hospitalization)
  Sender: FDA-Public Use
  Company Number: US-TORRENT-00007619

PATIENT
  Weight: 45 kg

DRUGS (1)
  1. LOSARTAN. [Suspect]
     Active Substance: LOSARTAN
     Indication: HYPERTENSION
     Dates: start: 2016, end: 201802

REACTIONS (6)
  - Pleural effusion [Fatal]
  - Liver disorder [Unknown]
  - Heart rate decreased [Unknown]
  - Sepsis [Fatal]
  - Renal disorder [Fatal]
  - Bacterial toxaemia [Unknown]
